FAERS Safety Report 21667794 (Version 6)
Quarter: 2024Q1

REPORT INFORMATION
  Report Type: Spontaneous
  Country: US (occurrence: US)
  Receive Date: 20221201
  Receipt Date: 20240213
  Transmission Date: 20240410
  Serious: Yes (Other)
  Sender: FDA-Public Use
  Company Number: US-PFIZER INC-PV202200115046

PATIENT
  Age: 65 Year
  Sex: Female
  Weight: 75.283 kg

DRUGS (4)
  1. IBRANCE [Suspect]
     Active Substance: PALBOCICLIB
     Indication: Breast cancer female
     Dosage: 1 TABLET DAILY, ON DAYS 1 THROUGH 21 OF A 28-DAY TREATMENT CYCLE, 1 THROUGH 21, WITH 7 DAYS OFF FOR
     Route: 048
     Dates: start: 202210
  2. IBRANCE [Suspect]
     Active Substance: PALBOCICLIB
     Indication: Breast cancer metastatic
     Dosage: 125 MG, DAILY (1 TABLET ORALLY DAILY ADMINISTER ON DAYS 1 THROUGH 21 OF A 28-DAY TREATMENT CYCLE)
     Route: 048
  3. IBRANCE [Suspect]
     Active Substance: PALBOCICLIB
     Indication: Hormone receptor positive breast cancer
  4. ANASTROZOLE [Concomitant]
     Active Substance: ANASTROZOLE
     Dosage: UNK
     Dates: start: 202208

REACTIONS (5)
  - Neutropenia [Unknown]
  - White blood cell count decreased [Unknown]
  - Lymphoedema [Recovering/Resolving]
  - Alopecia [Not Recovered/Not Resolved]
  - Dry skin [Not Recovered/Not Resolved]
